FAERS Safety Report 25698676 (Version 1)
Quarter: 2025Q3

REPORT INFORMATION
  Report Type: Report from Study
  Country: US (occurrence: US)
  Receive Date: 20250819
  Receipt Date: 20250819
  Transmission Date: 20251021
  Serious: Yes (Hospitalization, Other)
  Sender: ABBVIE
  Company Number: US-ABBVIE-6307652

PATIENT
  Age: 55 Year
  Sex: Female

DRUGS (2)
  1. HUMIRA [Suspect]
     Active Substance: ADALIMUMAB
     Indication: Crohn^s disease
     Route: 058
     Dates: start: 20250421
  2. HUMIRA [Suspect]
     Active Substance: ADALIMUMAB
     Route: 058

REACTIONS (12)
  - Fatigue [Unknown]
  - Tinnitus [Unknown]
  - Haematochezia [Unknown]
  - Frequent bowel movements [Unknown]
  - Abdominal pain [Unknown]
  - Flushing [Unknown]
  - Flatulence [Unknown]
  - Endodontic procedure [Recovering/Resolving]
  - Constipation [Recovered/Resolved]
  - Tooth infection [Unknown]
  - Toothache [Recovering/Resolving]
  - Abdominal pain upper [Unknown]

NARRATIVE: CASE EVENT DATE: 20250101
